FAERS Safety Report 10024904 (Version 1)
Quarter: 2014Q1

REPORT INFORMATION
  Report Type: Spontaneous
  Country: GB (occurrence: GB)
  Receive Date: 20140320
  Receipt Date: 20140320
  Transmission Date: 20141002
  Serious: Yes (Other)
  Sender: FDA-Public Use
  Company Number: GB-WATSON-2014-04946

PATIENT
  Age: 56 Year
  Sex: Female
  Weight: 67 kg

DRUGS (1)
  1. AMLODIPINE BESYLATE (UNKNOWN) [Suspect]
     Indication: HYPERTENSION
     Dosage: 10 MG, UNKNOWN
     Route: 048
     Dates: start: 20130414, end: 20131201

REACTIONS (2)
  - Vertigo [Recovered/Resolved with Sequelae]
  - Vomiting [Recovered/Resolved with Sequelae]
